FAERS Safety Report 20345609 (Version 2)
Quarter: 2022Q1

REPORT INFORMATION
  Report Type: Report from Study
  Country: CA (occurrence: CA)
  Receive Date: 20220118
  Receipt Date: 20220126
  Transmission Date: 20220423
  Serious: Yes (Other)
  Sender: FDA-Public Use
  Company Number: CA-NOVARTISPH-NVSC2022CA007195

PATIENT
  Sex: Female

DRUGS (4)
  1. INDOMETHACIN [Suspect]
     Active Substance: INDOMETHACIN
     Indication: Product used for unknown indication
     Dosage: UNK, SINGLE ORAL DOSE
     Route: 048
     Dates: start: 20200311, end: 202003
  2. CELECOXIB [Suspect]
     Active Substance: CELECOXIB
     Indication: Product used for unknown indication
     Dosage: UNK
     Route: 065
     Dates: start: 20200214, end: 20201030
  3. NAPROXEN [Suspect]
     Active Substance: NAPROXEN
     Indication: Product used for unknown indication
     Dosage: UNK
     Route: 065
     Dates: start: 20200911, end: 20200930
  4. IBUPROFEN [Concomitant]
     Active Substance: IBUPROFEN
     Indication: Product used for unknown indication
     Dosage: 2 DOSAGE FORM, BID
     Route: 048
     Dates: start: 202105

REACTIONS (11)
  - Ankylosing spondylitis [Unknown]
  - Uveitis [Unknown]
  - Pleural thickening [Unknown]
  - Sacroiliitis [Unknown]
  - Psoriasis [Unknown]
  - Gastrointestinal disorder [Unknown]
  - Multiple allergies [Unknown]
  - Malaise [Unknown]
  - Fatigue [Unknown]
  - Rash [Unknown]
  - Drug intolerance [Unknown]
